FAERS Safety Report 14709692 (Version 1)
Quarter: 2018Q2

REPORT INFORMATION
  Report Type: Spontaneous
  Country: FR (occurrence: FR)
  Receive Date: 20180403
  Receipt Date: 20180403
  Transmission Date: 20180711
  Serious: Yes (Other)
  Sender: FDA-Public Use
  Company Number: FR-MERCK KGAA-2045009

PATIENT
  Age: 57 Year
  Sex: Female

DRUGS (2)
  1. NOVOTHYROX [Suspect]
     Active Substance: LEVOTHYROXINE SODIUM
     Indication: HYPOTHYROIDISM
     Dates: start: 201703
  2. XANAX [Concomitant]
     Active Substance: ALPRAZOLAM

REACTIONS (43)
  - Fatigue [None]
  - Insomnia [None]
  - Mood swings [None]
  - Social avoidant behaviour [None]
  - Impaired work ability [Recovered/Resolved]
  - Malaise [None]
  - Tachycardia [None]
  - Balance disorder [None]
  - Feeling guilty [None]
  - Suicidal ideation [None]
  - Alopecia [Recovering/Resolving]
  - Asthenia [Recovering/Resolving]
  - Impaired driving ability [None]
  - Mental disorder [None]
  - Tri-iodothyronine free decreased [None]
  - Hyperthyroidism [None]
  - Dizziness [Recovering/Resolving]
  - Presyncope [None]
  - Myalgia [None]
  - Muscle spasms [None]
  - Panic attack [None]
  - Aggression [None]
  - Respiratory disorder [None]
  - Autophobia [None]
  - Feelings of worthlessness [None]
  - Depressed mood [None]
  - Depression [None]
  - Migraine [None]
  - Arthralgia [None]
  - Disturbance in attention [None]
  - Loss of personal independence in daily activities [None]
  - Anti-thyroid antibody positive [None]
  - Blood thyroid stimulating hormone increased [None]
  - Palpitations [None]
  - Tremor [None]
  - Generalised anxiety disorder [None]
  - Gait disturbance [None]
  - Chest pain [Recovering/Resolving]
  - Feeling abnormal [None]
  - Dyspnoea [None]
  - Emotional distress [None]
  - Decreased interest [None]
  - Blood thyroid stimulating hormone decreased [None]

NARRATIVE: CASE EVENT DATE: 20170802
